FAERS Safety Report 8965633 (Version 1)
Quarter: 2012Q4

REPORT INFORMATION
  Report Type: Spontaneous
  Country: DE (occurrence: None)
  Receive Date: 20121128
  Receipt Date: 20121128
  Transmission Date: 20130627
  Serious: Yes (Death)
  Sender: FDA-Public Use
  Company Number: 2012034012

PATIENT
  Age: 53 Year
  Sex: Male

DRUGS (4)
  1. PRIVIGEN (IMMUNE GLOBULIN INTRAVENOUS (HUMAN) 10% LIQUID) [Suspect]
     Indication: GUILLAIN-BARRE SYNDROME
     Route: 042
     Dates: start: 20120223, end: 20120223
  2. PRIVIGEN (IMMUNE GLOBULIN INTRAVENOUS (HUMAN) 10% LIQUID) [Suspect]
     Indication: GUILLAIN-BARRE SYNDROME
     Route: 042
     Dates: start: 20120308, end: 20120308
  3. PRIVIGEN (IMMUNE GLOBULIN INTRAVENOUS (HUMAN) 10% LIQUID) [Suspect]
     Indication: GUILLAIN-BARRE SYNDROME
     Route: 042
     Dates: start: 20120531, end: 20120531
  4. PRIVIGEN (IMMUNE GLOBULIN INTRAVENOUS (HUMAN) 10% LIQUID) [Suspect]
     Indication: GUILLAIN-BARRE SYNDROME
     Route: 042
     Dates: start: 20120611, end: 20120611

REACTIONS (2)
  - Pneumonia [None]
  - Death [None]
